FAERS Safety Report 7581183-1 (Version None)
Quarter: 2011Q2

REPORT INFORMATION
  Report Type: 
  Country: None (occurrence: None)
  Receive Date: 20110629
  Receipt Date: 20110623
  Transmission Date: 20111010
  Serious: Yes (Other)
  Sender: FDA-Public Use
  Company Number: JP-EISAI INC-E2090-01435-SPO-JP

PATIENT
  Sex: Female

DRUGS (4)
  1. ZONISAMIDE [Suspect]
     Indication: EPILEPSY
     Route: 048
     Dates: end: 20101220
  2. FUROSEMIDE [Concomitant]
     Indication: HYPERTENSION
     Route: 048
  3. FRANDOL [Concomitant]
     Indication: HYPERTENSION
     Route: 048
  4. ZONISAMIDE [Suspect]
     Route: 048
     Dates: start: 20101221, end: 20101222

REACTIONS (1)
  - PANCYTOPENIA [None]
